FAERS Safety Report 12439439 (Version 1)
Quarter: 2016Q2

REPORT INFORMATION
  Report Type: Report from Study
  Country: US (occurrence: US)
  Receive Date: 20160606
  Receipt Date: 20160606
  Transmission Date: 20160815
  Serious: Yes (Other)
  Sender: FDA-Public Use
  Company Number: US-CELGENEUS-USA-2016016024

PATIENT

DRUGS (4)
  1. INDOXIMOD [Suspect]
     Active Substance: INDOXIMOD
     Route: 048
  2. INDOXIMOD [Suspect]
     Active Substance: INDOXIMOD
     Indication: PANCREATIC CARCINOMA METASTATIC
     Route: 048
  3. ABRAXANE [Suspect]
     Active Substance: PACLITAXEL
     Indication: PANCREATIC CARCINOMA METASTATIC
     Dosage: 125 MILLIGRAM/SQ. METER
     Route: 041
  4. GEMCITABINE [Suspect]
     Active Substance: GEMCITABINE\GEMCITABINE HYDROCHLORIDE
     Indication: PANCREATIC CARCINOMA METASTATIC
     Route: 041

REACTIONS (7)
  - Alopecia [Unknown]
  - Colitis [Unknown]
  - Fatigue [Unknown]
  - Neuropathy peripheral [Unknown]
  - Nausea [Unknown]
  - Oedema peripheral [Unknown]
  - Ascites [Unknown]
